FAERS Safety Report 4348043-0 (Version None)
Quarter: 2004Q2

REPORT INFORMATION
  Report Type: 
  Country: None (occurrence: None)
  Receive Date: 20040422
  Receipt Date: 20040407
  Transmission Date: 20050107
  Serious: Yes (Hospitalization)
  Sender: FDA-Public Use
  Company Number: S04-GER-00857-01

PATIENT
  Age: 86 Year
  Sex: Female

DRUGS (1)
  1. CITALOPRAM HYDROBROMIDE [Suspect]
     Indication: DEPRESSION
     Dosage: 20 MG QD PO
     Route: 048
     Dates: start: 20031107, end: 20031112

REACTIONS (7)
  - DIFFICULTY IN WALKING [None]
  - DISORIENTATION [None]
  - DYSSTASIA [None]
  - FAECAL INCONTINENCE [None]
  - HYPONATRAEMIA [None]
  - LEUKOCYTOSIS [None]
  - LUNG INFECTION [None]
